FAERS Safety Report 5522999-2 (Version None)
Quarter: 2007Q4

REPORT INFORMATION
  Report Type: 
  Country: None (occurrence: None)
  Receive Date: 20071121
  Receipt Date: 20071110
  Transmission Date: 20080405
  Serious: Yes (Hospitalization)
  Sender: FDA-Public Use
  Company Number: PHHY2007MX00453

PATIENT
  Age: 72 Year
  Sex: Male

DRUGS (1)
  1. DIOVAN HCT [Suspect]
     Indication: HYPERTENSION
     Dosage: 160/12.5 MG/DAY
     Route: 048

REACTIONS (3)
  - INFLAMMATION [None]
  - PAIN IN EXTREMITY [None]
  - RECTAL HAEMORRHAGE [None]
